FAERS Safety Report 13618977 (Version 1)
Quarter: 2017Q2

REPORT INFORMATION
  Report Type: Spontaneous
  Country: US (occurrence: US)
  Receive Date: 20170606
  Receipt Date: 20170606
  Transmission Date: 20170830
  Serious: Yes (Death)
  Sender: FDA-Public Use
  Company Number: None

PATIENT
  Age: 83 Year
  Sex: Male

DRUGS (2)
  1. XTANDI [Concomitant]
     Active Substance: ENZALUTAMIDE
  2. DEXAMETHASONE 0.5MG TAB WEST-WARD [Suspect]
     Active Substance: DEXAMETHASONE
     Indication: PROSTATE CANCER
     Route: 048
     Dates: start: 201701, end: 201703

REACTIONS (1)
  - Death [None]

NARRATIVE: CASE EVENT DATE: 201703
